FAERS Safety Report 6016216-7 (Version None)
Quarter: 2008Q4

REPORT INFORMATION
  Report Type: 
  Country: None (occurrence: None)
  Receive Date: 20081222
  Receipt Date: 20071115
  Transmission Date: 20090506
  Serious: No
  Sender: FDA-Public Use
  Company Number: US-BRISTOL-MYERS SQUIBB COMPANY-14108526

PATIENT

DRUGS (1)
  1. KENALOG [Suspect]

REACTIONS (2)
  - INJECTION SITE REACTION [None]
  - MUSCLE ATROPHY [None]
